FAERS Safety Report 4308584-9 (Version None)
Quarter: 2004Q1

REPORT INFORMATION
  Report Type: 
  Country: None (occurrence: None)
  Receive Date: 20040301
  Receipt Date: 20040219
  Transmission Date: 20041129
  Serious: Yes (Death)
  Sender: FDA-Public Use
  Company Number: WAES 0402BEL00020

PATIENT
  Age: 55 Year
  Sex: Male
  Weight: 62 kg

DRUGS (3)
  1. AMPHOTERICIN B [Concomitant]
     Route: 042
     Dates: start: 20031017, end: 20031023
  2. CANCIDAS [Suspect]
     Indication: FUNGAL INFECTION
     Route: 042
     Dates: start: 20031024, end: 20031024
  3. CANCIDAS [Suspect]
     Route: 042
     Dates: start: 20031025, end: 20031026

REACTIONS (1)
  - DEATH [None]
